FAERS Safety Report 9391677 (Version 2)
Quarter: 2013Q3

REPORT INFORMATION
  Report Type: Spontaneous
  Country: US (occurrence: US)
  Receive Date: 20130709
  Receipt Date: 20130819
  Transmission Date: 20140515
  Serious: Yes (Hospitalization)
  Sender: FDA-Public Use
  Company Number: US-GLAXOSMITHKLINE-A1031542A

PATIENT
  Age: 86 Year
  Sex: Male
  Weight: 95 kg

DRUGS (7)
  1. ADVAIR [Suspect]
     Indication: PRODUCT USED FOR UNKNOWN INDICATION
     Dosage: 1PUFF TWICE PER DAY
     Route: 065
     Dates: start: 20100405
  2. BACTRIM [Suspect]
     Indication: PRODUCT USED FOR UNKNOWN INDICATION
  3. PRILOSEC [Concomitant]
  4. SINGULAIR [Concomitant]
  5. ASPIRIN [Concomitant]
  6. POTASSIUM CHLORIDE [Concomitant]
  7. CPAP [Concomitant]

REACTIONS (5)
  - Cellulitis staphylococcal [Recovered/Resolved]
  - Wound infection [Recovered/Resolved]
  - Limb injury [Recovered/Resolved]
  - Surgery [Recovered/Resolved]
  - Drug hypersensitivity [Unknown]
